FAERS Safety Report 6227669-3 (Version None)
Quarter: 2009Q2

REPORT INFORMATION
  Report Type: 
  Country: None (occurrence: None)
  Receive Date: 20090612
  Receipt Date: 20090605
  Transmission Date: 20091009
  Serious: Yes (Death, Life-Threatening)
  Sender: FDA-Public Use
  Company Number: PHHY2009JP09690

PATIENT
  Sex: Male
  Weight: 45 kg

DRUGS (11)
  1. ICL670A ICL+DISTAB [Suspect]
     Indication: IRON OVERLOAD
     Dosage: 1000 MG/DAY
     Route: 048
     Dates: start: 20081110, end: 20081229
  2. ICL670A ICL+DISTAB [Suspect]
     Indication: MYELODYSPLASTIC SYNDROME
  3. BASEN [Concomitant]
     Dosage: 0.9 MG, UNK
     Route: 048
     Dates: start: 20080714, end: 20081229
  4. GLYCORAN [Concomitant]
     Dosage: 750 MG, UNK
     Route: 048
     Dates: start: 20080714, end: 20081229
  5. NATEGLINIDE [Concomitant]
     Dosage: 270 MG, UNK
     Route: 048
     Dates: start: 20080714, end: 20081229
  6. ACTOS [Concomitant]
     Dosage: 15 MG, UNK
     Route: 048
     Dates: start: 20080714, end: 20081229
  7. LENDORMIN [Concomitant]
     Dosage: 0.25 MG, UNK
     Route: 048
     Dates: start: 20080714, end: 20081229
  8. GASTER D [Concomitant]
     Dosage: 40 MG, UNK
     Route: 048
     Dates: start: 20080714, end: 20081229
  9. MUCOSTA [Concomitant]
     Dosage: 300 MG, UNK
     Route: 048
     Dates: start: 20080714, end: 20081229
  10. FLIVAS [Concomitant]
     Dosage: 50 MG, UNK
     Route: 048
     Dates: start: 20080919, end: 20081229
  11. FUROSEMIDE [Concomitant]
     Indication: MYELODYSPLASTIC SYNDROME
     Dosage: 20 MG, UNK
     Route: 048
     Dates: start: 20081014, end: 20081229

REACTIONS (5)
  - DISEASE PROGRESSION [None]
  - INFECTION [None]
  - MYELODYSPLASTIC SYNDROME [None]
  - PULMONARY OEDEMA [None]
  - RENAL DISORDER [None]
